FAERS Safety Report 7057049-2 (Version None)
Quarter: 2010Q4

REPORT INFORMATION
  Report Type: 
  Country: None (occurrence: None)
  Receive Date: 20101022
  Receipt Date: 20101012
  Transmission Date: 20110411
  Serious: Yes (Other)
  Sender: FDA-Public Use
  Company Number: US-BAYER-201030140NA

PATIENT
  Age: 21 Year
  Sex: Female

DRUGS (1)
  1. MIRENA [Suspect]
     Indication: PRODUCT USED FOR UNKNOWN INDICATION
     Dosage: FREQUENCY CONTINUOUS
     Route: 015
     Dates: start: 20090701, end: 20100802

REACTIONS (3)
  - DEVICE EXPULSION [None]
  - FOETAL HEART RATE ABNORMAL [None]
  - PREGNANCY WITH CONTRACEPTIVE DEVICE [None]
